FAERS Safety Report 4614976-0 (Version None)
Quarter: 2005Q1

REPORT INFORMATION
  Report Type: 
  Country: None (occurrence: None)
  Receive Date: 20050315
  Receipt Date: 20050306
  Transmission Date: 20050727
  Serious: Yes (Other)
  Sender: FDA-Public Use
  Company Number: 2005-03-0330

PATIENT
  Sex: Female

DRUGS (3)
  1. CLARITIN-D [Suspect]
     Indication: SEASONAL ALLERGY
     Dosage: 1 TAB ORAL
     Route: 048
     Dates: start: 20050305, end: 20050306
  2. SYNTHROID [Concomitant]
  3. PREMARIN [Concomitant]

REACTIONS (2)
  - ABNORMAL BEHAVIOUR [None]
  - HALLUCINATION [None]
